FAERS Safety Report 4429464-4 (Version None)
Quarter: 2004Q3

REPORT INFORMATION
  Report Type: 
  Country: None (occurrence: None)
  Receive Date: 20040817
  Receipt Date: 20040817
  Transmission Date: 20050211
  Serious: Yes (Other)
  Sender: FDA-Public Use
  Company Number: None

PATIENT
  Age: 6 Year
  Sex: Female
  Weight: 21 kg

DRUGS (2)
  1. CEFTRIAXONE [Suspect]
     Indication: PNEUMONIA
     Dosage: 1 GM IV Q12H
     Route: 042
     Dates: start: 20040705, end: 20040712
  2. VANCOMYCIN [Suspect]
     Indication: PNEUMONIA
     Dosage: SEE IMAGE
     Dates: start: 20040709, end: 20040712

REACTIONS (2)
  - HYPERSENSITIVITY [None]
  - OXYGEN SATURATION DECREASED [None]
